FAERS Safety Report 6739033-9 (Version None)
Quarter: 2010Q2

REPORT INFORMATION
  Report Type: 
  Country: None (occurrence: None)
  Receive Date: 20100524
  Receipt Date: 20100524
  Transmission Date: 20101027
  Serious: Yes (Other)
  Sender: FDA-Public Use
  Company Number: None

PATIENT
  Age: 12 Year
  Sex: Female
  Weight: 64.4108 kg

DRUGS (4)
  1. ZYPREXA [Suspect]
     Indication: SCHIZOPHRENIA, PARANOID TYPE
     Dosage: 10MG BID PO
     Route: 048
     Dates: start: 20100329, end: 20100419
  2. SEROQUEL [Suspect]
     Indication: SCHIZOPHRENIA, PARANOID TYPE
     Dosage: 300MG BID PO
     Route: 048
     Dates: start: 20100419, end: 20100517
  3. LEXAPRO [Concomitant]
  4. WELLBUTRIN [Concomitant]

REACTIONS (1)
  - LEUKOPENIA [None]
